FAERS Safety Report 6132542-5 (Version None)
Quarter: 2009Q1

REPORT INFORMATION
  Report Type: 
  Country: None (occurrence: None)
  Receive Date: 20090324
  Receipt Date: 20090309
  Transmission Date: 20090719
  Serious: Yes (Life-Threatening)
  Sender: FDA-Public Use
  Company Number: 2009S1004374

PATIENT
  Age: 66 Year
  Sex: Male

DRUGS (4)
  1. DOXEPIN HCL [Suspect]
     Indication: ATRIOVENTRICULAR BLOCK SECOND DEGREE
  2. DILTAHEXAL (DILTIAZEM HYDROCHLORIDE) [Suspect]
     Indication: HYPERTENSION
     Dosage: 120 MG; DAILY;
     Dates: end: 20090206
  3. DIOVAN HCT [Concomitant]
  4. VALPROATE SODIUM [Concomitant]

REACTIONS (1)
  - ATRIOVENTRICULAR BLOCK SECOND DEGREE [None]
